FAERS Safety Report 10879108 (Version 3)
Quarter: 2015Q2

REPORT INFORMATION
  Report Type: Spontaneous
  Country: US (occurrence: US)
  Receive Date: 20150302
  Receipt Date: 20150520
  Transmission Date: 20150821
  Serious: No
  Sender: FDA-Public Use
  Company Number: US-GLAXOSMITHKLINE-US2015012621

PATIENT

DRUGS (10)
  1. VITAMIN B3 [Concomitant]
     Active Substance: NIACIN
  2. DORZOLAMIDE HYDROCHLORIDE. [Concomitant]
     Active Substance: DORZOLAMIDE HYDROCHLORIDE
  3. OESTROGENS [Concomitant]
  4. TESTOSTERONE CREAM [Concomitant]
  5. OMEGA 3 [Concomitant]
     Active Substance: OMEGA-3 FATTY ACIDS
  6. UBIQUINOL [Concomitant]
  7. VERAMYST [Suspect]
     Active Substance: FLUTICASONE FUROATE
     Indication: SINUSITIS
     Dosage: 2 PUFF(S), QD
     Route: 045
     Dates: start: 2011
  8. CALCIUM [Concomitant]
     Active Substance: CALCIUM
  9. LATANOPROST. [Concomitant]
     Active Substance: LATANOPROST
  10. BIOTIN [Concomitant]
     Active Substance: BIOTIN

REACTIONS (2)
  - Epistaxis [Recovered/Resolved]
  - Product quality issue [Unknown]
